FAERS Safety Report 9530074 (Version 1)
Quarter: 2013Q3

REPORT INFORMATION
  Report Type: Spontaneous
  Country: US (occurrence: US)
  Receive Date: 20130917
  Receipt Date: 20130917
  Transmission Date: 20140515
  Serious: Yes (Hospitalization, Other)
  Sender: FDA-Public Use
  Company Number: US-BAXTER-2013BAX035822

PATIENT
  Age: 67 Year
  Sex: Male

DRUGS (4)
  1. IFOSFAMIDE FOR INJECTION [Suspect]
     Indication: DIFFUSE LARGE B-CELL LYMPHOMA
     Dosage: 11.5 G INFUSED OVER 24 H ON DAY 2
     Route: 042
  2. RITUXIMAB [Suspect]
     Indication: DIFFUSE LARGE B-CELL LYMPHOMA
     Dosage: INFUSED SLOWLY OVER 5 TO 6 H ON DAY 1
     Route: 042
  3. ETOPOSIDE [Suspect]
     Indication: DIFFUSE LARGE B-CELL LYMPHOMA
     Dosage: INFUSED OVER 60 MIN ON DAYS 1 TO 3
     Route: 042
  4. CARBOPLATIN [Suspect]
     Indication: DIFFUSE LARGE B-CELL LYMPHOMA
     Dosage: INFUSED OVER 60 MIN ON DAY 2
     Route: 042

REACTIONS (2)
  - Encephalopathy [Recovered/Resolved]
  - Renal failure acute [Recovered/Resolved]
